FAERS Safety Report 7371768-X (Version None)
Quarter: 2011Q1

REPORT INFORMATION
  Report Type: 
  Country: None (occurrence: None)
  Receive Date: 20110324
  Receipt Date: 20110310
  Transmission Date: 20110831
  Serious: Yes (Hospitalization, Other)
  Sender: FDA-Public Use
  Company Number: PHHY2010CA68017

PATIENT
  Sex: Female

DRUGS (2)
  1. SANDOSTATIN LAR [Suspect]
     Indication: NEUROENDOCRINE TUMOUR
     Dosage: 50 MG, QMO
     Route: 030
     Dates: start: 20050104
  2. SANDOSTATIN [Suspect]
     Dosage: 100 UG, TID
     Route: 058

REACTIONS (7)
  - HEART VALVE INCOMPETENCE [None]
  - DIARRHOEA [None]
  - INTESTINAL FUNCTIONAL DISORDER [None]
  - INSOMNIA [None]
  - CARCINOID HEART DISEASE [None]
  - ANXIETY [None]
  - ASTHENIA [None]
